FAERS Safety Report 5873096-8 (Version None)
Quarter: 2008Q3

REPORT INFORMATION
  Report Type: 
  Country: None (occurrence: None)
  Receive Date: 20080902
  Receipt Date: 20080818
  Transmission Date: 20090109
  Serious: Yes (Other)
  Sender: FDA-Public Use
  Company Number: 2008SP001781

PATIENT
  Age: 28 Year
  Sex: Male

DRUGS (2)
  1. ALVESCO [Suspect]
     Indication: ASTHMA
     Dosage: 600 UG; 1X; INHALATION
     Route: 055
     Dates: start: 20080702, end: 20080702
  2. SEREVENT [Concomitant]

REACTIONS (1)
  - ANAPHYLACTOID REACTION [None]
